FAERS Safety Report 14918180 (Version 1)
Quarter: 2018Q2

REPORT INFORMATION
  Report Type: Spontaneous
  Country: US (occurrence: US)
  Receive Date: 20180521
  Receipt Date: 20180521
  Transmission Date: 20180711
  Serious: Yes (Hospitalization, Other)
  Sender: FDA-Public Use
  Company Number: US-AUROBINDO-AUR-APL-2018-025883

PATIENT
  Age: 35 Year
  Sex: Female

DRUGS (5)
  1. HYDROXYCHLOROQUINE [Suspect]
     Active Substance: HYDROXYCHLOROQUINE
     Indication: HAEMODIALYSIS
     Dosage: UNK
     Route: 065
  2. NIFEDIPINE. [Suspect]
     Active Substance: NIFEDIPINE
     Indication: HAEMODIALYSIS
     Dosage: UNK
     Route: 065
  3. LEVOTHYROXINE. [Suspect]
     Active Substance: LEVOTHYROXINE
     Indication: HAEMODIALYSIS
     Dosage: UNK
     Route: 065
  4. PREDNISONE. [Suspect]
     Active Substance: PREDNISONE
     Indication: HAEMODIALYSIS
     Dosage: 60 MILLIGRAM, DAILY
     Route: 048
  5. CYCLOPHOSPHAMIDE. [Suspect]
     Active Substance: CYCLOPHOSPHAMIDE

REACTIONS (19)
  - Gastrointestinal haemorrhage [Recovering/Resolving]
  - Sinus tachycardia [Recovering/Resolving]
  - Seizure [Recovering/Resolving]
  - Cushingoid [Recovering/Resolving]
  - Dysstasia [Recovering/Resolving]
  - Hypoaesthesia [Recovering/Resolving]
  - Weight increased [Recovering/Resolving]
  - Cytomegalovirus gastritis [Recovering/Resolving]
  - Central obesity [Recovering/Resolving]
  - Paraesthesia [Recovering/Resolving]
  - Myopathy [Recovering/Resolving]
  - Intervertebral discitis [Recovering/Resolving]
  - Hypotension [Recovering/Resolving]
  - Compression fracture [Recovering/Resolving]
  - Fatigue [Recovering/Resolving]
  - Encephalopathy [Recovering/Resolving]
  - Muscular weakness [Recovering/Resolving]
  - Beta haemolytic streptococcal infection [Recovered/Resolved]
  - Urinary tract infection [Recovering/Resolving]
